FAERS Safety Report 6927551-X (Version None)
Quarter: 2010Q3

REPORT INFORMATION
  Report Type: 
  Country: None (occurrence: None)
  Receive Date: 20100817
  Receipt Date: 20100708
  Transmission Date: 20110219
  Serious: Yes (Other)
  Sender: FDA-Public Use
  Company Number: US-BAYER-201013338NA

PATIENT
  Age: 37 Year
  Sex: Female
  Weight: 98 kg

DRUGS (28)
  1. YAZ [Suspect]
     Indication: MENORRHAGIA
     Dosage: YAZ WAS TAKEN INCONSISTENTLY
     Route: 048
     Dates: start: 20081002, end: 20090721
  2. ACETAMINOPHEN [Concomitant]
     Dosage: ^ALL THE TIME^
     Route: 065
  3. PRISTIQ [Concomitant]
     Indication: DEPRESSION
     Route: 065
     Dates: start: 20081002
  4. TRAMADOL [Concomitant]
     Indication: BACK PAIN
     Route: 065
     Dates: start: 20091101
  5. HYDROCODONE BITARTRATE [Concomitant]
     Indication: BACK PAIN
     Route: 065
     Dates: start: 20091101
  6. HYDROCODONE BITARTRATE AND ACETAMINOPHEN [Concomitant]
     Route: 065
     Dates: start: 20081001
  7. ALPRAZOLAM [Concomitant]
     Route: 065
     Dates: start: 20090101, end: 20090101
  8. PREDNISONE [Concomitant]
     Route: 065
     Dates: start: 20090701, end: 20090701
  9. TRAZODONE HCL [Concomitant]
     Route: 065
     Dates: start: 20090701
  10. METOPROLOL TARTRATE [Concomitant]
     Route: 065
     Dates: start: 20091201
  11. VERAPAMIL HCL [Concomitant]
     Dosage: TOTAL DAILY DOSE: 240 MG  UNIT DOSE: 80 MG
     Route: 065
     Dates: start: 20091001, end: 20091026
  12. PROPO-N/APAP [Concomitant]
     Route: 065
     Dates: start: 20091001
  13. PROZAC [Concomitant]
     Route: 065
     Dates: start: 20070401
  14. VICODIN [Concomitant]
     Route: 048
     Dates: start: 20090601
  15. RELACORE [Concomitant]
     Indication: WEIGHT DECREASED
     Route: 065
  16. ATIVAN [Concomitant]
     Route: 065
  17. NORCO [Concomitant]
     Indication: PAIN
     Route: 065
  18. ZOFRAN [Concomitant]
     Indication: NAUSEA
     Route: 065
  19. TORADOL [Concomitant]
     Route: 042
     Dates: start: 20081101, end: 20081101
  20. DILAUDID [Concomitant]
     Route: 042
     Dates: start: 20081101, end: 20081101
  21. VICODIN [Concomitant]
     Route: 042
     Dates: start: 20081101, end: 20081101
  22. MIRALAX [Concomitant]
     Route: 065
     Dates: start: 20081101
  23. SODIUM PHOSPHATES [Concomitant]
     Route: 065
     Dates: start: 20081101
  24. ADENOCARD [Concomitant]
     Indication: SUPRAVENTRICULAR TACHYCARDIA
     Route: 065
     Dates: start: 20090501
  25. METOPROLOL TARTRATE [Concomitant]
     Indication: SUPRAVENTRICULAR TACHYCARDIA
  26. FLEXERIL [Concomitant]
     Indication: SUPRAVENTRICULAR TACHYCARDIA
     Route: 065
     Dates: start: 20090501
  27. CARDIZEM [Concomitant]
     Indication: SUPRAVENTRICULAR TACHYCARDIA
     Route: 065
  28. ASPIRIN [Concomitant]
     Route: 065
     Dates: start: 20091026

REACTIONS (2)
  - CARDIAC ABLATION [None]
  - VAGINAL HAEMORRHAGE [None]
